FAERS Safety Report 5607583-4 (Version None)
Quarter: 2008Q1

REPORT INFORMATION
  Report Type: 
  Country: None (occurrence: None)
  Receive Date: 20080130
  Receipt Date: 20080124
  Transmission Date: 20080703
  Serious: Yes (Death, Other)
  Sender: FDA-Public Use
  Company Number: US-ASTRAZENECA-2006UW18068

PATIENT
  Age: 39 Year
  Sex: Female

DRUGS (6)
  1. SEROQUEL [Suspect]
     Indication: SCHIZOPHRENIA
     Route: 048
     Dates: start: 20000901
  2. SEROQUEL [Suspect]
     Indication: INTERMITTENT EXPLOSIVE DISORDER
     Route: 048
     Dates: start: 20000901
  3. SEROQUEL [Suspect]
     Route: 048
     Dates: start: 20040901
  4. SEROQUEL [Suspect]
     Route: 048
     Dates: start: 20040901
  5. RISPERDAL [Suspect]
     Indication: SCHIZOPHRENIA
     Dosage: 1 MG TO 3 MG
     Dates: start: 20001001, end: 20040401
  6. RISPERDAL [Suspect]
     Indication: INTERMITTENT EXPLOSIVE DISORDER
     Dosage: 1 MG TO 3 MG
     Dates: start: 20001001, end: 20040401

REACTIONS (8)
  - DIABETIC KETOACIDOSIS [None]
  - GYNAECOMASTIA [None]
  - NEUROLEPTIC MALIGNANT SYNDROME [None]
  - PANCREATITIS [None]
  - PNEUMONIA STAPHYLOCOCCAL [None]
  - RENAL FAILURE CHRONIC [None]
  - SEPTIC SHOCK [None]
  - TYPE 2 DIABETES MELLITUS [None]
